FAERS Safety Report 16148869 (Version 1)
Quarter: 2020Q3

REPORT INFORMATION
  Report Type: Report from Study
  Country: US (occurrence: US)
  Receive Date: 20190402
  Receipt Date: 20190402
  Transmission Date: 20201105
  Serious: Yes (Hospitalization)
  Sender: FDA-Public Use
  Company Number: US-PFIZER INC-2019132759

PATIENT
  Age: 70 Year
  Sex: Female
  Weight: 82.91 kg

DRUGS (3)
  1. PACLITAXEL. [Suspect]
     Active Substance: PACLITAXEL
     Indication: OVARIAN EPITHELIAL CANCER
     Dosage: 167 MG, WEEKDAYS 1, 8, 15 OF A 28 DAY CYCLE
     Route: 042
     Dates: start: 20181203, end: 20190110
  2. SULFAMETHOXAZOLE AND TRIMETHOPRIM [Concomitant]
     Active Substance: SULFAMETHOXAZOLE\TRIMETHOPRIM
     Dosage: UNK
     Dates: start: 20190129
  3. NUMIDARGISTAT. [Suspect]
     Active Substance: NUMIDARGISTAT
     Indication: OVARIAN EPITHELIAL CANCER
     Dosage: 100 MG, BID
     Route: 048
     Dates: start: 20181203, end: 20190111

REACTIONS (3)
  - Muscular weakness [Recovering/Resolving]
  - Dyspnoea [Recovered/Resolved]
  - Dehydration [Recovering/Resolving]

NARRATIVE: CASE EVENT DATE: 20190211
